FAERS Safety Report 10775728 (Version 1)
Quarter: 2015Q1

REPORT INFORMATION
  Report Type: Spontaneous
  Country: GB (occurrence: GB)
  Receive Date: 20150209
  Receipt Date: 20150209
  Transmission Date: 20150721
  Serious: Yes (Other)
  Sender: FDA-Public Use
  Company Number: GB-IPSEN BIOPHARMACEUTICALS, INC.-2013-4979

PATIENT
  Age: 37 Year
  Sex: Female
  Weight: 65 kg

DRUGS (3)
  1. AZZALURE [Suspect]
     Active Substance: BOTULINUM TOXIN TYPE A
     Indication: SKIN WRINKLING
  2. AZZALURE [Suspect]
     Active Substance: BOTULINUM TOXIN TYPE A
     Indication: SKIN WRINKLING
     Dosage: 96 UNITS
     Route: 030
     Dates: start: 20131101, end: 20131101
  3. AZZALURE [Suspect]
     Active Substance: BOTULINUM TOXIN TYPE A
     Indication: PRODUCT USE ISSUE

REACTIONS (3)
  - Exposure during pregnancy [Unknown]
  - Overdose [Unknown]
  - Abortion spontaneous [Recovered/Resolved]

NARRATIVE: CASE EVENT DATE: 20131125
